FAERS Safety Report 18410664 (Version 1)
Quarter: 2020Q4

REPORT INFORMATION
  Report Type: Report from Study
  Country: None (occurrence: GB)
  Receive Date: 20201021
  Receipt Date: 20201021
  Transmission Date: 20210114
  Serious: Yes (Other)
  Sender: FDA-Public Use
  Company Number: GB-ABBVIE-20K-167-3615673-00

PATIENT
  Age: 47 Year
  Sex: Female

DRUGS (3)
  1. SKYRIZI [Suspect]
     Active Substance: RISANKIZUMAB-RZAA
     Route: 058
  2. SKYRIZI [Suspect]
     Active Substance: RISANKIZUMAB-RZAA
     Indication: PSORIASIS
     Dosage: WEEK 0
     Route: 058
  3. SKYRIZI [Suspect]
     Active Substance: RISANKIZUMAB-RZAA
     Dosage: WEEK 4
     Route: 058

REACTIONS (12)
  - Impaired quality of life [Unknown]
  - Adverse drug reaction [Recovered/Resolved]
  - Nightmare [Unknown]
  - Pneumonia [Unknown]
  - Weight decreased [Unknown]
  - Anxiety [Unknown]
  - Myocardial infarction [Unknown]
  - Rash [Recovered/Resolved]
  - Cardiac disorder [Unknown]
  - Tearfulness [Unknown]
  - Depression [Unknown]
  - Skin exfoliation [Unknown]

NARRATIVE: CASE EVENT DATE: 2017
